FAERS Safety Report 5558951-0 (Version None)
Quarter: 2007Q4

REPORT INFORMATION
  Report Type: 
  Country: None (occurrence: None)
  Receive Date: 20071214
  Receipt Date: 20070913
  Transmission Date: 20080405
  Serious: No
  Sender: FDA-Public Use
  Company Number: US-ABBOTT-07P-163-0416983-00

PATIENT
  Sex: Male
  Weight: 134.1 kg

DRUGS (5)
  1. HUMIRA [Suspect]
     Indication: CROHN'S DISEASE
     Route: 058
     Dates: start: 20070801
  2. HUMIRA [Suspect]
     Route: 058
     Dates: start: 20070813, end: 20070813
  3. MESALAMINE [Concomitant]
     Indication: CROHN'S DISEASE
  4. METRONIDAZOLE HCL [Concomitant]
     Indication: CROHN'S DISEASE
  5. ZYPREXA [Concomitant]
     Indication: DEPRESSION

REACTIONS (3)
  - FATIGUE [None]
  - HEADACHE [None]
  - NAUSEA [None]
